FAERS Safety Report 8577727-3 (Version None)
Quarter: 2012Q3

REPORT INFORMATION
  Report Type: 
  Country: None (occurrence: None)
  Receive Date: 20120808
  Receipt Date: 20120730
  Transmission Date: 20120928
  Serious: Yes (Other)
  Sender: FDA-Public Use
  Company Number: NL-AMGEN-NLDSP2012048987

PATIENT
  Age: 54 Year
  Sex: Male

DRUGS (4)
  1. ENBREL [Suspect]
     Indication: ANKYLOSING SPONDYLITIS
     Dosage: 25 MG, 2X/WEEK
     Dates: start: 20100101
  2. SALASOPYRINE [Concomitant]
     Dosage: UNK
  3. ARCOXIA [Concomitant]
     Dosage: UNK
  4. ENBREL [Suspect]
     Dosage: 50 MG, WEEKLY

REACTIONS (4)
  - MACULE [None]
  - EYE INFLAMMATION [None]
  - SKIN CANCER [None]
  - DRUG INEFFECTIVE [None]
